FAERS Safety Report 4579651-X (Version None)
Quarter: 2005Q1

REPORT INFORMATION
  Report Type: 
  Country: None (occurrence: None)
  Receive Date: 20050210
  Receipt Date: 20050126
  Transmission Date: 20050727
  Serious: Yes (Death)
  Sender: FDA-Public Use
  Company Number: 2004AL000777

PATIENT
  Age: 45 Year
  Sex: Male

DRUGS (1)
  1. VERAPAMIL HYDROCHLORIDE [Suspect]
     Dosage: PO
     Route: 048

REACTIONS (7)
  - BLOOD PRESSURE DECREASED [None]
  - CARDIAC ARREST [None]
  - COMPLETED SUICIDE [None]
  - GENERAL PHYSICAL HEALTH DETERIORATION [None]
  - INTENTIONAL MISUSE [None]
  - MYOCARDIAL ISCHAEMIA [None]
  - TROPONIN INCREASED [None]
